FAERS Safety Report 23707347 (Version 1)
Quarter: 2024Q2

REPORT INFORMATION
  Report Type: Spontaneous
  Country: US (occurrence: US)
  Receive Date: 20240404
  Receipt Date: 20240404
  Transmission Date: 20240716
  Serious: No
  Sender: FDA-Public Use
  Company Number: US-GLAXOSMITHKLINE-US2024AMR040705

PATIENT
  Sex: Female

DRUGS (1)
  1. ZEJULA [Suspect]
     Active Substance: NIRAPARIB
     Indication: Neoplasm malignant
     Dosage: 200 MG, QD
     Route: 048
     Dates: start: 20230428

REACTIONS (1)
  - Urinary tract infection [Recovering/Resolving]
